FAERS Safety Report 5696375-6 (Version None)
Quarter: 2008Q2

REPORT INFORMATION
  Report Type: 
  Country: None (occurrence: None)
  Receive Date: 20080408
  Receipt Date: 20080328
  Transmission Date: 20081010
  Serious: Yes (Other)
  Sender: FDA-Public Use
  Company Number: US-PFIZER INC-2008028239

PATIENT
  Sex: Female
  Weight: 134.54 kg

DRUGS (9)
  1. CELEBREX [Suspect]
     Indication: ARTHRITIS
     Route: 048
     Dates: start: 20071201, end: 20080201
  2. NEXIUM [Concomitant]
  3. CELEXA [Concomitant]
  4. CYCLOBENZAPRINE HCL [Concomitant]
  5. SIMVASTATIN [Concomitant]
  6. PLENDIL [Concomitant]
  7. LEVOXYL [Concomitant]
  8. ATACAND [Concomitant]
  9. HYDROCHLOROTHIAZIDE [Concomitant]

REACTIONS (1)
  - PALPITATIONS [None]
